FAERS Safety Report 11806772 (Version 2)
Quarter: 2015Q4

REPORT INFORMATION
  Report Type: Spontaneous
  Country: US (occurrence: US)
  Receive Date: 20151207
  Receipt Date: 20151217
  Transmission Date: 20160305
  Serious: Yes (Life-Threatening)
  Sender: FDA-Public Use
  Company Number: US-AKORN PHARMACEUTICALS-2015AKN00690

PATIENT
  Age: 20 Year
  Sex: Male
  Weight: 104.31 kg

DRUGS (1)
  1. MYORISAN [Suspect]
     Active Substance: ISOTRETINOIN
     Indication: ACNE
     Dosage: 20 MG, 1X/DAY
     Route: 048
     Dates: start: 20150915, end: 20151015

REACTIONS (2)
  - Suicide attempt [Unknown]
  - Alanine aminotransferase increased [Unknown]

NARRATIVE: CASE EVENT DATE: 20151021
